FAERS Safety Report 9260296 (Version 2)
Quarter: 2013Q2

REPORT INFORMATION
  Report Type: Spontaneous
  Country: JP (occurrence: JP)
  Receive Date: 20130429
  Receipt Date: 20130515
  Transmission Date: 20140414
  Serious: Yes (Hospitalization)
  Sender: FDA-Public Use
  Company Number: PHHY2013JP041579

PATIENT
  Age: 64 Year
  Sex: Male
  Weight: 56 kg

DRUGS (3)
  1. TEGRETOL [Suspect]
     Indication: EPILEPSY
     Dosage: 200 MG, BID
     Route: 048
     Dates: start: 20130123, end: 20130318
  2. MINOMYCIN [Suspect]
     Indication: INFECTION
     Dosage: 100 MG, BID
     Route: 048
     Dates: start: 20130322, end: 20130329
  3. LAMICTAL [Concomitant]
     Indication: EPILEPSY
     Dosage: 100 MG, UNK
     Route: 048
     Dates: start: 20120926, end: 20130318

REACTIONS (9)
  - Drug reaction with eosinophilia and systemic symptoms [Unknown]
  - Drug eruption [Recovered/Resolved]
  - Toxic skin eruption [Unknown]
  - Rash generalised [Recovered/Resolved]
  - Pigmentation disorder [Unknown]
  - Cough [Unknown]
  - Oral disorder [Unknown]
  - Headache [Unknown]
  - Hepatic function abnormal [Recovered/Resolved]
